FAERS Safety Report 21206348 (Version 1)
Quarter: 2022Q3

REPORT INFORMATION
  Report Type: Report from Study
  Country: CO (occurrence: CO)
  Receive Date: 20220812
  Receipt Date: 20220812
  Transmission Date: 20221027
  Serious: Yes (Death, Other)
  Sender: FDA-Public Use
  Company Number: CO-ASTELLAS-2022US028395

PATIENT
  Age: 52 Year
  Sex: Female
  Weight: 41 kg

DRUGS (1)
  1. TACROLIMUS [Suspect]
     Active Substance: TACROLIMUS
     Indication: Renal transplant
     Route: 048
     Dates: start: 20070420

REACTIONS (1)
  - Secondary immunodeficiency [Fatal]

NARRATIVE: CASE EVENT DATE: 20220311
